FAERS Safety Report 22105168 (Version 1)
Quarter: 2023Q1

REPORT INFORMATION
  Report Type: Spontaneous
  Country: CH (occurrence: CH)
  Receive Date: 20230316
  Receipt Date: 20230316
  Transmission Date: 20230418
  Serious: Yes (Other)
  Sender: FDA-Public Use
  Company Number: CH-NOVEN PHARMACEUTICALS, INC.-2023-NOV-CH000244

PATIENT
  Age: 28 Year
  Sex: Male

DRUGS (1)
  1. METHYLPHENIDATE [Suspect]
     Active Substance: METHYLPHENIDATE
     Indication: Product used for unknown indication
     Dosage: 270 MG, UNK
     Route: 048

REACTIONS (3)
  - Toxicity to various agents [Unknown]
  - Suicidal ideation [Unknown]
  - Drug abuse [Unknown]
